FAERS Safety Report 24371895 (Version 1)
Quarter: 2024Q3

REPORT INFORMATION
  Report Type: Spontaneous
  Country: US (occurrence: None)
  Receive Date: 20240926
  Receipt Date: 20240926
  Transmission Date: 20241016
  Serious: Yes (Hospitalization)
  Sender: Public
  Company Number: None

PATIENT
  Age: 66 Year
  Sex: Female
  Weight: 53.55 kg

DRUGS (9)
  1. PAXLOVID [Suspect]
     Active Substance: NIRMATRELVIR\RITONAVIR
     Indication: COVID-19
     Dosage: OTHER QUANTITY : 3 CAPSULE(S);?FREQUENCY : TWICE A DAY;?
     Route: 048
     Dates: start: 20240917, end: 20240917
  2. GABAPENTIN [Concomitant]
  3. acyclovir [Concomitant]
  4. ASCORBIC ACID [Concomitant]
     Active Substance: ASCORBIC ACID
  5. VITAMIN D [Concomitant]
     Active Substance: VITAMIN D NOS
  6. B12 [Concomitant]
  7. Algae Cal Plus [Concomitant]
  8. Arthroben (collagen) [Concomitant]
  9. Magnesium (Calm) [Concomitant]

REACTIONS (5)
  - Illness [None]
  - Vomiting [None]
  - Hypophagia [None]
  - Hepatitis acute [None]
  - Nausea [None]

NARRATIVE: CASE EVENT DATE: 20240918
